FAERS Safety Report 13445975 (Version 2)
Quarter: 2017Q2

REPORT INFORMATION
  Report Type: Report from Study
  Country: CA (occurrence: CA)
  Receive Date: 20170417
  Receipt Date: 20170614
  Transmission Date: 20170830
  Serious: Yes (Hospitalization, Other)
  Sender: FDA-Public Use
  Company Number: CA-AMGEN-CANSL2017055578

PATIENT
  Age: 77 Year
  Sex: Male

DRUGS (1)
  1. XGEVA [Suspect]
     Active Substance: DENOSUMAB
     Indication: PROSTATE CANCER
     Dosage: 120 MG/ML, (120 MG/1.7ML)
     Route: 065
     Dates: start: 20151216

REACTIONS (2)
  - Hospitalisation [Unknown]
  - Palliative care [Not Recovered/Not Resolved]
